FAERS Safety Report 14553238 (Version 2)
Quarter: 2018Q1

REPORT INFORMATION
  Report Type: Spontaneous
  Country: US (occurrence: US)
  Receive Date: 20180220
  Receipt Date: 20180307
  Transmission Date: 20180509
  Serious: Yes (Hospitalization, Other)
  Sender: FDA-Public Use
  Company Number: US-PFIZER INC-2018069078

PATIENT
  Age: 70 Year
  Sex: Female
  Weight: 113.4 kg

DRUGS (2)
  1. TOVIAZ [Suspect]
     Active Substance: FESOTERODINE FUMARATE
     Indication: URINARY INCONTINENCE
  2. TOVIAZ [Suspect]
     Active Substance: FESOTERODINE FUMARATE
     Indication: HYPERTONIC BLADDER
     Dosage: 8 MG, 1X/DAY
     Route: 048
     Dates: end: 201801

REACTIONS (15)
  - Hypoaesthesia [Unknown]
  - Hepatic cirrhosis [Unknown]
  - Seizure [Recovered/Resolved with Sequelae]
  - Pituitary tumour [Unknown]
  - Lower respiratory tract infection [Unknown]
  - Swelling [Recovering/Resolving]
  - Gait disturbance [Not Recovered/Not Resolved]
  - Overweight [Unknown]
  - Ammonia increased [Unknown]
  - Cerebrovascular accident [Unknown]
  - Asthenia [Unknown]
  - Lethargy [Unknown]
  - Memory impairment [Unknown]
  - Drug ineffective [Unknown]
  - Neoplasm [Recovered/Resolved with Sequelae]

NARRATIVE: CASE EVENT DATE: 201712
